FAERS Safety Report 17229385 (Version 1)
Quarter: 2020Q1

REPORT INFORMATION
  Report Type: Spontaneous
  Country: US (occurrence: US)
  Receive Date: 20200103
  Receipt Date: 20200103
  Transmission Date: 20200409
  Serious: No
  Sender: FDA-Public Use
  Company Number: US-MYLANLABS-2019M1131854

PATIENT
  Age: 4 Year
  Sex: Male

DRUGS (1)
  1. LEVALBUTEROL INHALATION SOLUTION USP (CONCENTRATE) [Suspect]
     Active Substance: LEVALBUTEROL
     Indication: WHEEZING
     Dosage: 1 VIAL EVERY 4 H AS NEEDED
     Route: 045
     Dates: start: 20191120, end: 20191223

REACTIONS (1)
  - Wrong technique in product usage process [Recovered/Resolved]

NARRATIVE: CASE EVENT DATE: 20191120
